FAERS Safety Report 19770105 (Version 1)
Quarter: 2021Q3

REPORT INFORMATION
  Report Type: Spontaneous
  Country: US (occurrence: US)
  Receive Date: 20210827
  Receipt Date: 20210827
  Transmission Date: 20211014
  Serious: Yes (Death)
  Sender: FDA-Public Use
  Company Number: None

PATIENT
  Age: 61 Year
  Sex: Female

DRUGS (1)
  1. ZARXIO [Suspect]
     Active Substance: FILGRASTIM-SNDZ
     Dosage: ?          OTHER STRENGTH:480MCG/0.8ML; PER CYCLE?
     Route: 058
     Dates: start: 20210407, end: 20210813

REACTIONS (1)
  - Death [None]
